FAERS Safety Report 19448056 (Version 1)
Quarter: 2021Q2

REPORT INFORMATION
  Report Type: Spontaneous
  Country: US (occurrence: US)
  Receive Date: 20210622
  Receipt Date: 20210622
  Transmission Date: 20210717
  Serious: Yes (Hospitalization)
  Sender: FDA-Public Use
  Company Number: None

PATIENT
  Age: 71 Year
  Sex: Female
  Weight: 51.5 kg

DRUGS (1)
  1. ELTROMBOPAG [Suspect]
     Active Substance: ELTROMBOPAG
     Indication: THROMBOCYTOPENIA
     Route: 048
     Dates: start: 20210603, end: 20210610

REACTIONS (4)
  - Liver injury [None]
  - Jaundice [None]
  - Ocular icterus [None]
  - Hepatic enzyme increased [None]

NARRATIVE: CASE EVENT DATE: 20210615
